FAERS Safety Report 24578692 (Version 2)
Quarter: 2024Q4

REPORT INFORMATION
  Report Type: Spontaneous
  Country: JP (occurrence: JP)
  Receive Date: 20241105
  Receipt Date: 20241119
  Transmission Date: 20250115
  Serious: Yes (Other)
  Sender: ROCHE
  Company Number: JP-CHUGAI-2024037967

PATIENT
  Age: 50 Year
  Sex: Female

DRUGS (3)
  1. AVASTIN [Suspect]
     Active Substance: BEVACIZUMAB
     Indication: Ovarian cancer stage II
     Dosage: UNK
     Route: 042
  2. PACLITAXEL [Concomitant]
     Active Substance: PACLITAXEL
     Indication: Ovarian cancer stage II
     Dosage: UNK
     Route: 042
  3. CARBOPLATIN [Concomitant]
     Active Substance: CARBOPLATIN
     Indication: Ovarian cancer stage II
     Dosage: UNK
     Route: 042

REACTIONS (6)
  - Vascular pseudoaneurysm ruptured [Unknown]
  - Vascular pseudoaneurysm [Unknown]
  - Gastrointestinal perforation [Unknown]
  - Fistula [Unknown]
  - Shock haemorrhagic [Unknown]
  - Fluid retention [Unknown]
